FAERS Safety Report 11031346 (Version 1)
Quarter: 2015Q2

REPORT INFORMATION
  Report Type: Spontaneous
  Country: US (occurrence: US)
  Receive Date: 20150415
  Receipt Date: 20150415
  Transmission Date: 20150821
  Serious: No
  Sender: FDA-Public Use
  Company Number: US-PFIZER INC-2015120439

PATIENT
  Age: 77 Year
  Sex: Female

DRUGS (5)
  1. ADVIL PM [Suspect]
     Active Substance: DIPHENHYDRAMINE CITRATE\IBUPROFEN
     Dosage: 2 CAPLETS AT BEDTIME IBUPROFEN 200MG DIPHENCITRATE 36MG
     Dates: start: 201412
  2. WELCHOL [Suspect]
     Active Substance: COLESEVELAM HYDROCHLORIDE
     Dosage: 1250 MG, DAILY (DAILY DOSE: 1250 MG (625 MG. 2 IN 1 D)
  3. VICODIN [Suspect]
     Active Substance: ACETAMINOPHEN\HYDROCODONE BITARTRATE
     Indication: FIBROMYALGIA
     Dosage: 7.5/500 MG.  TAKE HALF A PILL ALMOST EVERY NIGHT
     Route: 048
  4. TIMOLOL [Concomitant]
     Active Substance: TIMOLOL
     Indication: GLAUCOMA
     Dosage: UNK (IN BOTH EYES (1 DROP.2 IN 1 D))
  5. LEVOTHYROXINE [Concomitant]
     Active Substance: LEVOTHYROXINE
     Indication: THYROID DISORDER
     Dosage: 50 ?G, UNK

REACTIONS (5)
  - Myalgia [Unknown]
  - Hunger [Unknown]
  - Drug ineffective [Unknown]
  - Insomnia [Unknown]
  - Incorrect dose administered [Unknown]
